FAERS Safety Report 24715175 (Version 4)
Quarter: 2024Q4

REPORT INFORMATION
  Report Type: Report from Study
  Country: ES (occurrence: ES)
  Receive Date: 20241210
  Receipt Date: 20241231
  Transmission Date: 20250115
  Serious: Yes (Hospitalization)
  Sender: ABBVIE
  Company Number: ES-ABBVIE-6018143

PATIENT
  Age: 86 Year
  Sex: Male

DRUGS (2)
  1. CARBIDOPA\LEVODOPA [Suspect]
     Active Substance: CARBIDOPA\LEVODOPA
     Indication: Parkinson^s disease
     Dosage: 240 MG/ML + 12 MG/ML SOLUCION PARA PERFUSION
     Route: 058
     Dates: start: 20241114
  2. RIVOTRIL [Concomitant]
     Active Substance: CLONAZEPAM
     Indication: Product used for unknown indication

REACTIONS (18)
  - Hyponatraemia [Recovered/Resolved]
  - Unevaluable event [Unknown]
  - Musculoskeletal stiffness [Unknown]
  - Therapeutic product effect incomplete [Unknown]
  - Nervousness [Unknown]
  - Unevaluable event [Unknown]
  - Unevaluable event [Unknown]
  - Hallucination [Unknown]
  - Restlessness [Recovered/Resolved]
  - Dehydration [Unknown]
  - Somnolence [Not Recovered/Not Resolved]
  - Abnormal dreams [Unknown]
  - Unevaluable event [Unknown]
  - Vomiting [Recovered/Resolved]
  - Disorientation [Recovered/Resolved]
  - Diarrhoea [Recovered/Resolved]
  - Dyskinesia [Recovering/Resolving]
  - Pyrexia [Recovered/Resolved]

NARRATIVE: CASE EVENT DATE: 20241101
